FAERS Safety Report 17090496 (Version 1)
Quarter: 2019Q4

REPORT INFORMATION
  Report Type: Spontaneous
  Country: US (occurrence: US)
  Receive Date: 20191129
  Receipt Date: 20191129
  Transmission Date: 20200122
  Serious: No
  Sender: FDA-Public Use
  Company Number: US-UCBSA-2018025444

PATIENT
  Sex: Female

DRUGS (2)
  1. CIMZIA [Suspect]
     Active Substance: CERTOLIZUMAB PEGOL
     Indication: CROHN^S DISEASE
     Dosage: 400 MG, EV 2 WEEKS(QOW) (AT WEEK O, 2 AND 4)
     Route: 058
     Dates: start: 20170817
  2. CIMZIA [Suspect]
     Active Substance: CERTOLIZUMAB PEGOL
     Dosage: 200 MILLIGRAM, EV 4 WEEKS
     Route: 058
     Dates: start: 20191015

REACTIONS (6)
  - Contusion [Not Recovered/Not Resolved]
  - Mass [Not Recovered/Not Resolved]
  - Off label use [Unknown]
  - Pain in extremity [Unknown]
  - Fatigue [Unknown]
  - Pain [Unknown]
